FAERS Safety Report 6478906-1 (Version None)
Quarter: 2009Q4

REPORT INFORMATION
  Report Type: 
  Country: None (occurrence: None)
  Receive Date: 20091207
  Receipt Date: 20090819
  Transmission Date: 20100525
  Serious: No
  Sender: FDA-Public Use
  Company Number: US-AMGEN-KDL344067

PATIENT
  Sex: Female

DRUGS (1)
  1. ENBREL [Suspect]
     Indication: PSORIASIS
     Route: 058
     Dates: start: 20090319, end: 20090706

REACTIONS (4)
  - OROPHARYNGEAL PAIN [None]
  - PAIN [None]
  - RHEUMATOID ARTHRITIS [None]
  - RHINORRHOEA [None]
